FAERS Safety Report 5657023-4 (Version None)
Quarter: 2008Q1

REPORT INFORMATION
  Report Type: 
  Country: None (occurrence: None)
  Receive Date: 20080310
  Receipt Date: 20080305
  Transmission Date: 20080703
  Serious: Yes (Life-Threatening)
  Sender: FDA-Public Use
  Company Number: JP-ASTRAZENECA-2008AP01695

PATIENT
  Age: 70 Year
  Sex: Female

DRUGS (12)
  1. OMEPRAL [Suspect]
     Route: 048
  2. ITRIZOLE [Suspect]
     Dosage: UNKNOWN DOSE
     Route: 048
  3. TERNELIN [Concomitant]
     Dosage: UNKNOWN DOSE, PERIORAL
     Route: 048
  4. HOKUNALIN:TAPE [Concomitant]
     Dosage: UNKNOWN DOSE, TAPE
     Route: 062
  5. DIOVAN [Concomitant]
     Dosage: UNKNOWN DOSE
     Route: 048
  6. VALTREX [Concomitant]
     Dosage: UNKNOWN DOSE, PERIORAL
     Route: 048
  7. PROMAC [Concomitant]
     Dosage: UNKNOWN DOSE, PERIORAL
     Route: 048
  8. VESANOID [Concomitant]
     Dosage: UNKNOWN DOSE
     Route: 048
  9. SINGULAIR [Concomitant]
     Dosage: UNKNOWN DOSE, PERIORAL
     Route: 048
  10. FLUTIDE [Concomitant]
     Dosage: UNKNOWN DOSE
     Route: 055
  11. SPIRIVA [Concomitant]
     Dosage: UNKNOWN DOSE
     Route: 055
  12. LASIX [Concomitant]
     Dosage: UNKNOWN DOSE
     Route: 065

REACTIONS (1)
  - ELECTROCARDIOGRAM QT PROLONGED [None]
